FAERS Safety Report 14732780 (Version 2)
Quarter: 2018Q2

REPORT INFORMATION
  Report Type: Report from Study
  Country: None (occurrence: PT)
  Receive Date: 20180409
  Receipt Date: 20180510
  Transmission Date: 20180711
  Serious: Yes (Other)
  Sender: FDA-Public Use
  Company Number: PT-ABBVIE-18K-130-2315018-00

PATIENT
  Age: 65 Year
  Sex: Male

DRUGS (3)
  1. HUMIRA [Suspect]
     Active Substance: ADALIMUMAB
     Indication: ANKYLOSING SPONDYLITIS
     Route: 058
     Dates: start: 20170316, end: 201802
  2. HUMIRA [Suspect]
     Active Substance: ADALIMUMAB
     Route: 058
     Dates: start: 20180412
  3. AMOXICILLIN/CLAVULANIC ACID [Suspect]
     Active Substance: AMOXICILLIN\CLAVULANIC ACID
     Indication: TONSILLITIS
     Route: 048
     Dates: start: 20180324, end: 20180404

REACTIONS (3)
  - Post procedural haematuria [Recovered/Resolved]
  - Pruritus [Recovered/Resolved]
  - Tonsillitis [Recovered/Resolved]

NARRATIVE: CASE EVENT DATE: 20180324
